FAERS Safety Report 22588562 (Version 1)
Quarter: 2023Q2

REPORT INFORMATION
  Report Type: Spontaneous
  Country: US (occurrence: None)
  Receive Date: 20230609
  Receipt Date: 20230609
  Transmission Date: 20230721
  Serious: No
  Sender: FDA-Public Use
  Company Number: None

PATIENT
  Age: 66 Year
  Sex: Female
  Weight: 51.75 kg

DRUGS (1)
  1. PAXLOVID [Suspect]
     Active Substance: NIRMATRELVIR\RITONAVIR
     Indication: COVID-19
     Dosage: OTHER QUANTITY : 30 TABLET(S);?FREQUENCY : TWICE A DAY;?
     Route: 048
     Dates: start: 20230529, end: 20230602

REACTIONS (12)
  - Middle insomnia [None]
  - Pain in jaw [None]
  - Headache [None]
  - Hypertension [None]
  - Dysgeusia [None]
  - Diarrhoea [None]
  - Myalgia [None]
  - Abdominal pain upper [None]
  - Nausea [None]
  - Malaise [None]
  - Oropharyngeal pain [None]
  - Fatigue [None]

NARRATIVE: CASE EVENT DATE: 20230602
